FAERS Safety Report 5422375-7 (Version None)
Quarter: 2007Q3

REPORT INFORMATION
  Report Type: 
  Country: None (occurrence: None)
  Receive Date: 20070822
  Receipt Date: 20070817
  Transmission Date: 20080115
  Serious: Yes (Life-Threatening, Other)
  Sender: FDA-Public Use
  Company Number: A0659240A

PATIENT
  Age: 63 Year
  Sex: Female

DRUGS (5)
  1. REQUIP [Suspect]
     Indication: RESTLESS LEGS SYNDROME
     Dosage: 1MG PER DAY
     Route: 048
  2. LEXAPRO [Concomitant]
  3. FOCALIN [Concomitant]
  4. NEURONTIN [Concomitant]
  5. XANAX [Concomitant]

REACTIONS (1)
  - IMPAIRED DRIVING ABILITY [None]
